FAERS Safety Report 7425372-5 (Version None)
Quarter: 2011Q2

REPORT INFORMATION
  Report Type: 
  Country: None (occurrence: None)
  Receive Date: 20110420
  Receipt Date: 20101014
  Transmission Date: 20111010
  Serious: Yes (Hospitalization, Other)
  Sender: FDA-Public Use
  Company Number: US-BAYER-201022670NA

PATIENT
  Age: 18 Year
  Sex: Female
  Weight: 47.166 kg

DRUGS (11)
  1. ROLAIDS [Concomitant]
     Indication: DYSPEPSIA
     Dosage: PM
  2. CARAFATE [Concomitant]
     Indication: ABDOMINAL PAIN
     Dosage: 1 G, QID
  3. NEXIUM [Concomitant]
     Indication: ABDOMINAL PAIN
     Dosage: 40 MG, QD
  4. YAZ [Suspect]
     Indication: PREMENSTRUAL SYNDROME
     Dosage: UNK UNK, UNK
     Route: 048
     Dates: start: 20071001, end: 20080815
  5. SULFAMETTHOXAZOLE AND TRIMETHOPRIM [Concomitant]
     Indication: INFECTION
     Dosage: 800/160 MG BIDX10 DAYS
  6. GAS X [Concomitant]
     Indication: ABDOMINAL DISTENSION
     Dosage: PM
  7. MYLANTA AR [Concomitant]
     Indication: ABDOMINAL DISCOMFORT
     Dosage: PM
  8. IBUPROFEN [Concomitant]
     Indication: HEADACHE
     Dosage: PM
  9. IBUPROFEN [Concomitant]
     Indication: PAIN
  10. IMODIUM [Concomitant]
     Indication: DIARRHOEA
     Dosage: PM
  11. VALTREX [Concomitant]
     Dosage: 500 MG, UNK

REACTIONS (3)
  - BILIARY DYSKINESIA [None]
  - GALLBLADDER DISORDER [None]
  - CHOLECYSTITIS CHRONIC [None]
